FAERS Safety Report 9356711 (Version 1)
Quarter: 2013Q2

REPORT INFORMATION
  Report Type: Spontaneous
  Country: FR (occurrence: FR)
  Receive Date: 20130619
  Receipt Date: 20130619
  Transmission Date: 20140414
  Serious: Yes (Hospitalization)
  Sender: FDA-Public Use
  Company Number: PHHY2013FR061013

PATIENT
  Age: 72 Year
  Sex: Male

DRUGS (5)
  1. FORADIL [Suspect]
     Dosage: UNK
  2. RAMIPRIL [Suspect]
     Dosage: 2.5 MG, DAILY.
     Route: 048
     Dates: end: 20130321
  3. XATRAL [Suspect]
     Dosage: 10 MG, DAILY.
     Route: 048
     Dates: start: 20130206, end: 20130321
  4. FLECAINE [Suspect]
     Dosage: 100 MG
  5. KARDEGIC [Suspect]
     Dosage: 75 MG
     Route: 048

REACTIONS (5)
  - Orthostatic hypotension [Recovered/Resolved]
  - Malaise [Recovered/Resolved]
  - Loss of consciousness [Unknown]
  - Heart rate increased [Unknown]
  - Blood pressure decreased [Unknown]
